FAERS Safety Report 19421828 (Version 1)
Quarter: 2021Q2

REPORT INFORMATION
  Report Type: Report from Study
  Country: US (occurrence: US)
  Receive Date: 20210615
  Receipt Date: 20210615
  Transmission Date: 20210717
  Serious: No
  Sender: FDA-Public Use
  Company Number: US-ACADIA PHARMACEUTICALS INC.-ACA-2021-PIM-001909

PATIENT
  Sex: Male

DRUGS (18)
  1. HYDROCHLOROTHIAZIDE. [Concomitant]
     Active Substance: HYDROCHLOROTHIAZIDE
  2. OMEGA 3 [FISH OIL] [Concomitant]
     Active Substance: FISH OIL
  3. OXYCODONE/APAP [Concomitant]
     Active Substance: ACETAMINOPHEN\OXYCODONE HYDROCHLORIDE
  4. POLYETHYLENE GLYCOL [MACROGOL] [Concomitant]
     Active Substance: POLYETHYLENE GLYCOLS
  5. FEBUXOSTAT. [Concomitant]
     Active Substance: FEBUXOSTAT
  6. SUMATRIPTAN. [Concomitant]
     Active Substance: SUMATRIPTAN
  7. TAMSULOSIN [Concomitant]
     Active Substance: TAMSULOSIN
  8. ASPIRIN [ACETYLSALICYLIC ACID] [Concomitant]
     Active Substance: ASPIRIN
  9. FINASTERIDE. [Concomitant]
     Active Substance: FINASTERIDE
  10. CARBIDOPA/LEVODOPA [Concomitant]
     Active Substance: CARBIDOPA\LEVODOPA
  11. CLONAZEPAM. [Concomitant]
     Active Substance: CLONAZEPAM
  12. LORATADINE. [Concomitant]
     Active Substance: LORATADINE
  13. FUROSEMIDE. [Concomitant]
     Active Substance: FUROSEMIDE
  14. PREGABALIN. [Concomitant]
     Active Substance: PREGABALIN
  15. CALCITROL [CALCITRIOL] [Concomitant]
     Active Substance: CALCITRIOL
  16. NUPLAZID [Suspect]
     Active Substance: PIMAVANSERIN TARTRATE
     Indication: PARKINSON^S DISEASE
     Dosage: 34 MILLIGRAM, QD
     Route: 048
     Dates: start: 20201230
  17. ATORVASTATIN [Concomitant]
     Active Substance: ATORVASTATIN
  18. OMEPRAZOLE. [Concomitant]
     Active Substance: OMEPRAZOLE

REACTIONS (2)
  - Hallucination [Not Recovered/Not Resolved]
  - Nightmare [Not Recovered/Not Resolved]
